FAERS Safety Report 4843000-X (Version None)
Quarter: 2005Q4

REPORT INFORMATION
  Report Type: 
  Country: None (occurrence: None)
  Receive Date: 20051130
  Receipt Date: 20051117
  Transmission Date: 20060501
  Serious: Yes (Hospitalization, Other)
  Sender: FDA-Public Use
  Company Number: 200510210BCA

PATIENT
  Age: 79 Year
  Sex: Female

DRUGS (10)
  1. AVELOX [Suspect]
     Indication: PNEUMONIA
     Dosage: 400 MG, TOTAL DAILY, ORAL
     Route: 048
     Dates: start: 20041212
  2. AVELOX [Suspect]
     Indication: PYREXIA
     Dosage: 400 MG, TOTAL DAILY, ORAL
     Route: 048
     Dates: start: 20041212
  3. QUETIAPINE [Suspect]
     Dosage: 18.75 MG, TOTAL DAILY, ORAL
     Route: 048
  4. LAXATIVES [Concomitant]
  5. METOCLOPRAMIDE [Concomitant]
  6. MULTIVITAMIN [Concomitant]
  7. OLANZAPINE [Concomitant]
  8. SEROQUEL [Concomitant]
  9. THIAMINE [Concomitant]
  10. ACETAMINOPHEN [Concomitant]

REACTIONS (8)
  - ARTHRALGIA [None]
  - CONFUSIONAL STATE [None]
  - DEEP VEIN THROMBOSIS [None]
  - DELIRIUM [None]
  - HALLUCINATION, VISUAL [None]
  - JOINT EFFUSION [None]
  - OEDEMA PERIPHERAL [None]
  - VIRAL INFECTION [None]
